FAERS Safety Report 7188444-9 (Version None)
Quarter: 2010Q4

REPORT INFORMATION
  Report Type: 
  Country: None (occurrence: None)
  Receive Date: 20101222
  Receipt Date: 20101129
  Transmission Date: 20110411
  Serious: No
  Sender: FDA-Public Use
  Company Number: US-MYLANLABS-2010S1021797

PATIENT
  Age: 57 Year
  Sex: Female

DRUGS (4)
  1. ANASTROZOLE [Suspect]
     Indication: BREAST CANCER
     Route: 048
     Dates: start: 20100101
  2. PRISTIQ [Concomitant]
     Route: 048
  3. TRAZODONE HCL [Concomitant]
     Route: 048
  4. LEVOTHYROXINE [Concomitant]
     Indication: HYPOTHYROIDISM
     Route: 048

REACTIONS (4)
  - ARTHRALGIA [None]
  - COUGH [None]
  - SWELLING [None]
  - VOMITING [None]
